FAERS Safety Report 6396190-4 (Version None)
Quarter: 2009Q4

REPORT INFORMATION
  Report Type: 
  Country: None (occurrence: None)
  Receive Date: 20091011
  Receipt Date: 20090930
  Transmission Date: 20100525
  Serious: Yes (Disabling)
  Sender: FDA-Public Use
  Company Number: PHHY2009GB42807

PATIENT
  Age: 59 Year
  Sex: Male

DRUGS (3)
  1. ZOLEDRONIC ACID [Suspect]
     Indication: METASTASES TO BONE
     Dosage: 1 DF
     Route: 042
     Dates: start: 20040101, end: 20080101
  2. DILTIAZEM [Concomitant]
     Indication: HYPERTENSION
     Dosage: 90 MG, BID
     Route: 048
     Dates: end: 20090130
  3. RAMIPRIL [Concomitant]
     Indication: HYPERTENSION
     Dosage: 2.5 MG, BID
     Route: 048
     Dates: end: 20080930

REACTIONS (1)
  - OSTEONECROSIS [None]
